FAERS Safety Report 5606154-3 (Version None)
Quarter: 2008Q1

REPORT INFORMATION
  Report Type: 
  Country: None (occurrence: None)
  Receive Date: 20080129
  Receipt Date: 20070821
  Transmission Date: 20080703
  Serious: No
  Sender: FDA-Public Use
  Company Number: A0673479A

PATIENT

DRUGS (2)
  1. MEPRON [Suspect]
     Indication: DRUG USE FOR UNKNOWN INDICATION
     Route: 065
  2. MALARONE [Concomitant]

REACTIONS (2)
  - DEPRESSION [None]
  - PHARMACEUTICAL PRODUCT COMPLAINT [None]
